FAERS Safety Report 5519575-4 (Version None)
Quarter: 2007Q4

REPORT INFORMATION
  Report Type: 
  Country: None (occurrence: None)
  Receive Date: 20071116
  Receipt Date: 20071108
  Transmission Date: 20080405
  Serious: Yes (Other)
  Sender: FDA-Public Use
  Company Number: CN-ROCHE-522271

PATIENT
  Age: 35 Year
  Sex: Female

DRUGS (3)
  1. PEG-INTERFERON A-2A (RO 25-8310) [Suspect]
     Indication: HEPATITIS C
     Dosage: STRENGTH 180 UG/ML INJECTION.
     Route: 058
     Dates: start: 20070512, end: 20070601
  2. PEG-INTERFERON A-2A (RO 25-8310) [Suspect]
     Dosage: STRENGTH 135 UG/ML INJECTION.
     Route: 058
     Dates: start: 20070601, end: 20070801
  3. RIBAVIRIN [Concomitant]
     Indication: HEPATITIS

REACTIONS (3)
  - MENORRHAGIA [None]
  - PLATELET COUNT DECREASED [None]
  - THYROIDITIS [None]
